FAERS Safety Report 7059488-2 (Version None)
Quarter: 2010Q4

REPORT INFORMATION
  Report Type: 
  Country: None (occurrence: None)
  Receive Date: 20101025
  Receipt Date: 20101019
  Transmission Date: 20110411
  Serious: Yes (Death, Other)
  Sender: FDA-Public Use
  Company Number: IT-CELGENEUS-083-21880-10101952

PATIENT

DRUGS (2)
  1. REVLIMID [Suspect]
     Indication: AMYLOIDOSIS
     Route: 048
  2. DEXAMETHASONE [Concomitant]
     Indication: AMYLOIDOSIS
     Route: 065

REACTIONS (6)
  - DEATH [None]
  - DISEASE PROGRESSION [None]
  - NEUTROPENIA [None]
  - RASH [None]
  - RENAL FAILURE [None]
  - THROMBOCYTOPENIA [None]
